FAERS Safety Report 8484544-1 (Version None)
Quarter: 2012Q2

REPORT INFORMATION
  Report Type: 
  Country: None (occurrence: None)
  Receive Date: 20120625
  Receipt Date: 20120611
  Transmission Date: 20120825
  Serious: Yes (Hospitalization)
  Sender: FDA-Public Use
  Company Number: 2012ST000499

PATIENT
  Age: 88 Year
  Sex: Female

DRUGS (1)
  1. MATULANE [Suspect]
     Indication: PRODUCT USED FOR UNKNOWN INDICATION
     Dosage: 100 MG, QD, PO
     Route: 048
     Dates: start: 20120229

REACTIONS (1)
  - HOSPITALISATION [None]
